FAERS Safety Report 4515314-4 (Version None)
Quarter: 2004Q4

REPORT INFORMATION
  Report Type: 
  Country: None (occurrence: None)
  Receive Date: 20041126
  Receipt Date: 20041111
  Transmission Date: 20050328
  Serious: Yes (Other)
  Sender: FDA-Public Use
  Company Number: DSA_70407_2004

PATIENT
  Age: 41 Year
  Sex: Female
  Weight: 80.2867 kg

DRUGS (9)
  1. AZATHIOPRINE [Suspect]
     Indication: CROHN'S DISEASE
     Dosage: 150 MG QDAY
  2. SULFASALAZINE [Suspect]
     Indication: CROHN'S DISEASE
     Dosage: DF
  3. INFLIXIMAB [Suspect]
     Indication: CROHN'S DISEASE
     Dosage: 5 MG/KG PRN IV
     Route: 042
     Dates: start: 20020930
  4. ANT-DIARRHEAL MEDICATION [Suspect]
     Indication: DIARRHOEA
     Dosage: DF
  5. REMICADE [Concomitant]
  6. ASACOL [Concomitant]
  7. IMODIUM [Concomitant]
  8. DICYCLOMINE [Concomitant]
  9. FOLIC ACID [Concomitant]

REACTIONS (1)
  - COLON ADENOMA [None]
